FAERS Safety Report 10363944 (Version 1)
Quarter: 2014Q3

REPORT INFORMATION
  Report Type: Spontaneous
  Country: IT (occurrence: None)
  Receive Date: 20140801
  Receipt Date: 20140801
  Transmission Date: 20150326
  Serious: Yes (Hospitalization)
  Sender: FDA-Public Use
  Company Number: 2014AP003741

PATIENT
  Age: 17 Year
  Sex: Female

DRUGS (1)
  1. CLARITHROMYCIN. [Suspect]
     Active Substance: CLARITHROMYCIN
     Indication: DRUG ABUSE
     Route: 048
     Dates: start: 20140210, end: 20140210

REACTIONS (3)
  - Drug abuse [None]
  - Dysgeusia [None]
  - Vomiting [None]

NARRATIVE: CASE EVENT DATE: 20140210
